FAERS Safety Report 24544055 (Version 2)
Quarter: 2025Q3

REPORT INFORMATION
  Report Type: Report from Study
  Country: US (occurrence: US)
  Receive Date: 20241024
  Receipt Date: 20250802
  Transmission Date: 20251020
  Serious: Yes (Other)
  Sender: ALEXION PHARMACEUTICALS
  Company Number: US-AstraZeneca-CH-00728173A

PATIENT
  Sex: Female

DRUGS (1)
  1. SODIUM ZIRCONIUM CYCLOSILICATE [Suspect]
     Active Substance: SODIUM ZIRCONIUM CYCLOSILICATE

REACTIONS (6)
  - Product use issue [Unknown]
  - Blood potassium increased [Unknown]
  - Cerebrovascular accident [Unknown]
  - Blindness unilateral [Unknown]
  - Glaucoma [Unknown]
  - Diabetes mellitus [Unknown]
